FAERS Safety Report 19230981 (Version 1)
Quarter: 2021Q2

REPORT INFORMATION
  Report Type: Spontaneous
  Country: DE (occurrence: DE)
  Receive Date: 20210507
  Receipt Date: 20210507
  Transmission Date: 20210717
  Serious: Yes (Hospitalization)
  Sender: FDA-Public Use
  Company Number: DE-TEVA-2021-DE-1910569

PATIENT
  Age: 0 Year
  Sex: Male

DRUGS (2)
  1. COPAXONE [Suspect]
     Active Substance: GLATIRAMER ACETATE
     Indication: MULTIPLE SCLEROSIS
     Route: 064
     Dates: start: 20150608, end: 20190712
  2. COPAXONE [Suspect]
     Active Substance: GLATIRAMER ACETATE
     Route: 063
     Dates: start: 20200910

REACTIONS (5)
  - Premature baby [Unknown]
  - Jaundice neonatal [Unknown]
  - Foetal heart rate abnormal [Unknown]
  - Exposure via breast milk [Unknown]
  - Foetal exposure during pregnancy [Unknown]

NARRATIVE: CASE EVENT DATE: 20190610
